FAERS Safety Report 6427832-2 (Version None)
Quarter: 2009Q4

REPORT INFORMATION
  Report Type: 
  Country: None (occurrence: None)
  Receive Date: 20091102
  Receipt Date: 20091021
  Transmission Date: 20100525
  Serious: Yes (Other)
  Sender: FDA-Public Use
  Company Number: 2009AL005393

PATIENT
  Age: 54 Year
  Sex: Female

DRUGS (10)
  1. GABAPENTIN [Suspect]
     Indication: ANXIETY DISORDER
     Dosage: 900 MG; QD; PO
     Route: 048
     Dates: start: 20090224, end: 20090406
  2. GABAPENTIN [Suspect]
     Indication: PAIN
     Dosage: 900 MG; QD; PO
     Route: 048
     Dates: start: 20090224, end: 20090406
  3. TRAMADOL HCL [Suspect]
  4. ALPRAZOLAM [Suspect]
  5. FEVERALL [Suspect]
  6. RISEDRONIC ACID [Concomitant]
  7. ETHYLMORPHINE [Concomitant]
  8. PANTOPRAZOLE [Concomitant]
  9. OPTINATE [Concomitant]
  10. COCILLANA-ETYFIN [Concomitant]

REACTIONS (8)
  - DRY EYE [None]
  - GROWTH OF EYELASHES [None]
  - LACERATION [None]
  - PETECHIAE [None]
  - PRURITUS [None]
  - RESPIRATORY TRACT INFECTION [None]
  - SCRATCH [None]
  - ULCERATIVE KERATITIS [None]
